FAERS Safety Report 23531647 (Version 2)
Quarter: 2024Q2

REPORT INFORMATION
  Report Type: Spontaneous
  Country: JP (occurrence: JP)
  Receive Date: 20240216
  Receipt Date: 20240521
  Transmission Date: 20240715
  Serious: Yes (Hospitalization, Other)
  Sender: FDA-Public Use
  Company Number: JP-UCBSA-2024007695

PATIENT
  Age: 49 Year
  Sex: Male

DRUGS (10)
  1. CIMZIA [Suspect]
     Active Substance: CERTOLIZUMAB PEGOL
     Indication: Psoriatic arthropathy
     Dosage: 400 MILLIGRAM
     Route: 058
     Dates: start: 20230510, end: 20231025
  2. INDERAL [Concomitant]
     Active Substance: PROPRANOLOL HYDROCHLORIDE
     Indication: Hypertension
  3. SPIRONOLACTONE [Concomitant]
     Active Substance: SPIRONOLACTONE
     Indication: Ascites
  4. LIVACT [AMINO ACIDS NOS] [Concomitant]
     Indication: Cirrhosis alcoholic
  5. URSO 1A PHARMA [Concomitant]
     Indication: Liver disorder
  6. ESOMEPRAZOLE [Concomitant]
     Active Substance: ESOMEPRAZOLE
     Indication: Gastrointestinal disorder
     Dosage: UNK
  7. POLAPREZINC [Concomitant]
     Active Substance: POLAPREZINC
     Indication: Gastrointestinal disorder
  8. MIYA-BM [Concomitant]
     Active Substance: CLOSTRIDIUM BUTYRICUM SPORES STRAIN M-55
     Indication: Gastrointestinal disorder
  9. APREMILAST [Concomitant]
     Active Substance: APREMILAST
     Indication: Rash
     Dosage: UNK
  10. APREMILAST [Concomitant]
     Active Substance: APREMILAST
     Indication: Arthritis
     Dosage: RESUMED
     Route: 048
     Dates: start: 20240209

REACTIONS (5)
  - Transcatheter arterial chemoembolisation [Recovering/Resolving]
  - Hepatectomy [Recovering/Resolving]
  - Hepatocellular carcinoma [Recovering/Resolving]
  - Psoriatic arthropathy [Unknown]
  - Postoperative wound infection [Unknown]

NARRATIVE: CASE EVENT DATE: 20230831
